FAERS Safety Report 14262606 (Version 1)
Quarter: 2017Q4

REPORT INFORMATION
  Report Type: Spontaneous
  Country: CD (occurrence: CD)
  Receive Date: 20171208
  Receipt Date: 20171208
  Transmission Date: 20180321
  Serious: Yes (Death, Hospitalization)
  Sender: FDA-Public Use
  Company Number: CD-JNJFOC-20171202519

PATIENT
  Age: 6 Decade
  Sex: Male
  Weight: 30 kg

DRUGS (6)
  1. TMC207 [Suspect]
     Active Substance: BEDAQUILINE
     Indication: TUBERCULOSIS
     Dosage: 2X2/DAY/14 DAYS AND 2X3/WEEK/2 WEEKS
     Route: 048
     Dates: start: 20170708
  2. MEROPENEM. [Suspect]
     Active Substance: MEROPENEM
     Indication: TUBERCULOSIS
     Dosage: DOSE: 1.5
     Route: 042
     Dates: start: 20170807
  3. CLOFAZIMINE [Suspect]
     Active Substance: CLOFAZIMINE
     Indication: TUBERCULOSIS
     Route: 048
     Dates: start: 20170807
  4. PARA-AMINOSALICYLIC ACID [Suspect]
     Active Substance: AMINOSALICYLIC ACID
     Indication: TUBERCULOSIS
     Route: 048
     Dates: start: 20170807
  5. LINEZOLID. [Suspect]
     Active Substance: LINEZOLID
     Indication: TUBERCULOSIS
     Dosage: DOSE: 1.5
     Route: 048
     Dates: start: 20170807
  6. ISONIAZID. [Suspect]
     Active Substance: ISONIAZID
     Indication: TUBERCULOSIS
     Route: 048
     Dates: start: 20170807

REACTIONS (2)
  - Mouth ulceration [Fatal]
  - Anaemia [Fatal]

NARRATIVE: CASE EVENT DATE: 20170708
